FAERS Safety Report 23778604 (Version 1)
Quarter: 2024Q2

REPORT INFORMATION
  Report Type: Spontaneous
  Country: US (occurrence: US)
  Receive Date: 20240424
  Receipt Date: 20240424
  Transmission Date: 20240717
  Serious: No
  Sender: FDA-Public Use
  Company Number: US-BAUSCH-BL-2024-006174

PATIENT
  Age: 62 Year
  Sex: Female

DRUGS (3)
  1. PEPCID [Suspect]
     Active Substance: FAMOTIDINE
     Indication: Allergy to chemicals
     Dosage: SHE HAD BEEN TAKING FOR 15 YEARS ON A DOSE OF ONE TABLET DAILY
     Route: 048
     Dates: end: 202401
  2. WARFARIN [Concomitant]
     Active Substance: WARFARIN
     Indication: Product used for unknown indication
  3. HYDRALAZINE [Concomitant]
     Active Substance: HYDRALAZINE HYDROCHLORIDE
     Indication: Product used for unknown indication

REACTIONS (3)
  - Abdominal pain upper [Unknown]
  - Therapy interrupted [Unknown]
  - Insurance issue [Unknown]

NARRATIVE: CASE EVENT DATE: 20240101
